FAERS Safety Report 24949866 (Version 2)
Quarter: 2025Q1

REPORT INFORMATION
  Report Type: Spontaneous
  Country: GB (occurrence: GB)
  Receive Date: 20250210
  Receipt Date: 20250317
  Transmission Date: 20250409
  Serious: Yes (Death, Hospitalization, Other)
  Sender: BIOVITRUM
  Company Number: GB-BIOVITRUM-2025-GB-001845

PATIENT
  Sex: Female

DRUGS (1)
  1. EMAPALUMAB [Suspect]
     Active Substance: EMAPALUMAB
     Indication: Haemophagocytic lymphohistiocytosis
     Dates: start: 20231221

REACTIONS (6)
  - Multiple organ dysfunction syndrome [Unknown]
  - Renal failure [Fatal]
  - Candida sepsis [Fatal]
  - Haemophagocytic lymphohistiocytosis [Fatal]
  - Condition aggravated [Fatal]
  - Cytomegalovirus infection reactivation [Unknown]
